FAERS Safety Report 15712510 (Version 3)
Quarter: 2019Q1

REPORT INFORMATION
  Report Type: Spontaneous
  Country: CH (occurrence: CH)
  Receive Date: 20181212
  Receipt Date: 20190111
  Transmission Date: 20190417
  Serious: Yes (Death, Hospitalization)
  Sender: FDA-Public Use
  Company Number: CH-ASTELLAS-2018US050812

PATIENT
  Sex: Female

DRUGS (4)
  1. MYFORTIC [Concomitant]
     Active Substance: MYCOPHENOLATE SODIUM
     Indication: IMMUNOSUPPRESSANT DRUG THERAPY
     Dosage: UNK UNK, UNKNOWN FREQ.
     Route: 065
     Dates: end: 20181120
  2. ADVAGRAF [Suspect]
     Active Substance: TACROLIMUS
     Route: 048
     Dates: start: 20181008, end: 20181120
  3. ADVAGRAF [Suspect]
     Active Substance: TACROLIMUS
     Indication: RENAL TRANSPLANT
     Route: 048
     Dates: start: 201804
  4. ADVAGRAF [Suspect]
     Active Substance: TACROLIMUS
     Indication: PANCREAS TRANSPLANT
     Route: 048
     Dates: end: 20181008

REACTIONS (6)
  - Cerebral haemorrhage [Fatal]
  - Dysphagia [Unknown]
  - Product use in unapproved indication [Unknown]
  - Status epilepticus [Unknown]
  - Altered state of consciousness [Unknown]
  - Neurological symptom [Unknown]

NARRATIVE: CASE EVENT DATE: 201804
